FAERS Safety Report 4449762-8 (Version None)
Quarter: 2004Q3

REPORT INFORMATION
  Report Type: 
  Country: None (occurrence: None)
  Receive Date: 20040913
  Receipt Date: 20040831
  Transmission Date: 20050211
  Serious: Yes (Other)
  Sender: FDA-Public Use
  Company Number: S04-USA-00419-01

PATIENT
  Age: 40 Year
  Sex: Female
  Weight: 136.0791 kg

DRUGS (8)
  1. LEXAPRO [Suspect]
     Indication: DEPRESSION
     Dosage: 20 MG QD PO
     Route: 048
     Dates: start: 20031015, end: 20040113
  2. LEXAPRO [Suspect]
     Indication: DEPRESSION
     Dosage: 10 MG QD PO
     Route: 048
     Dates: start: 20030401, end: 20031014
  3. LEXAPRO [Suspect]
     Indication: DEPRESSION
     Dosage: 20 MG QD PO
     Route: 048
  4. ZONEGRAN [Suspect]
     Dates: start: 20031201, end: 20040113
  5. KLONOPIN [Concomitant]
  6. FLEXERIL [Concomitant]
  7. NEXIUM [Concomitant]
  8. BEXTRA [Concomitant]

REACTIONS (6)
  - CHEST PAIN [None]
  - DILATATION ATRIAL [None]
  - ELECTROCARDIOGRAM QT PROLONGED [None]
  - MITRAL VALVE INCOMPETENCE [None]
  - TREATMENT NONCOMPLIANCE [None]
  - VENTRICULAR HYPERTROPHY [None]
